FAERS Safety Report 5743878-1 (Version None)
Quarter: 2008Q2

REPORT INFORMATION
  Report Type: 
  Country: None (occurrence: None)
  Receive Date: 20080520
  Receipt Date: 20080512
  Transmission Date: 20081010
  Serious: Yes (Hospitalization, Other)
  Sender: FDA-Public Use
  Company Number: JP-ELI_LILLY_AND_COMPANY-JP200805002001

PATIENT
  Age: 77 Year
  Sex: Male

DRUGS (5)
  1. GEMZAR [Suspect]
     Dosage: 1000 MG/M2, UNK
     Route: 042
     Dates: start: 20080123, end: 20080305
  2. SPIRIVA [Concomitant]
     Route: 065
  3. MEDICON [Concomitant]
     Route: 065
  4. MUCOSOLVAN [Concomitant]
     Route: 065
  5. TAKEPRON [Concomitant]
     Route: 065

REACTIONS (3)
  - GASTRIC CANCER [None]
  - GASTROINTESTINAL PERFORATION [None]
  - ILEUS [None]
